FAERS Safety Report 23662968 (Version 2)
Quarter: 2024Q2

REPORT INFORMATION
  Report Type: Spontaneous
  Country: GB (occurrence: GB)
  Receive Date: 20240322
  Receipt Date: 20240517
  Transmission Date: 20240715
  Serious: Yes (Congenital Anomaly, Other)
  Sender: FDA-Public Use
  Company Number: None

PATIENT
  Age: 8 Year
  Sex: Male

DRUGS (1)
  1. QUETIAPINE [Suspect]
     Active Substance: QUETIAPINE
     Indication: Product used for unknown indication
     Dosage: MOTHER DOSE: 300MG BD (600 MG DAY)
     Route: 064

REACTIONS (12)
  - Autism spectrum disorder [Not Recovered/Not Resolved]
  - Neonatal neuroblastoma [Recovered/Resolved]
  - Foetal exposure during pregnancy [Unknown]
  - Hypertension [Unknown]
  - Tachypnoea [Unknown]
  - Hyperhidrosis [Unknown]
  - Abdominal mass [Unknown]
  - Skin lesion [Unknown]
  - Speech disorder developmental [Unknown]
  - Disturbance in attention [Unknown]
  - Psychomotor hyperactivity [Unknown]
  - Poor quality sleep [Unknown]

NARRATIVE: CASE EVENT DATE: 20230901
